FAERS Safety Report 6011749-1 (Version None)
Quarter: 2008Q4

REPORT INFORMATION
  Report Type: 
  Country: None (occurrence: None)
  Receive Date: 20081218
  Receipt Date: 20080228
  Transmission Date: 20090506
  Serious: No
  Sender: FDA-Public Use
  Company Number: US-ABBOTT-08P-163-0440396-00

PATIENT
  Sex: Female
  Weight: 69.462 kg

DRUGS (2)
  1. MERIDIA [Suspect]
     Indication: WEIGHT CONTROL
     Route: 048
     Dates: start: 20070801, end: 20080201
  2. MERIDIA [Suspect]
     Route: 048
     Dates: start: 20070225, end: 20070630

REACTIONS (4)
  - DRUG INEFFECTIVE [None]
  - HEADACHE [None]
  - THIRST [None]
  - WEIGHT LOSS POOR [None]
